FAERS Safety Report 17452006 (Version 1)
Quarter: 2020Q1

REPORT INFORMATION
  Report Type: Spontaneous
  Country: FR (occurrence: FR)
  Receive Date: 20200224
  Receipt Date: 20200224
  Transmission Date: 20200409
  Serious: Yes (Other)
  Sender: FDA-Public Use
  Company Number: FR-PFIZER INC-2020075115

PATIENT
  Age: 70 Year
  Sex: Female
  Weight: 48 kg

DRUGS (10)
  1. CHOLURSO [Concomitant]
     Active Substance: URSODIOL
  2. NOXAFIL [Suspect]
     Active Substance: POSACONAZOLE
     Indication: ATYPICAL MYCOBACTERIAL INFECTION
     Dosage: 300 MG, 1X/DAY
     Route: 048
     Dates: start: 20191106, end: 20191129
  3. PROPRANOLOL [Concomitant]
     Active Substance: PROPRANOLOL HYDROCHLORIDE
  4. LAMPREN [Suspect]
     Active Substance: CLOFAZIMINE
     Indication: ATYPICAL MYCOBACTERIAL INFECTION
     Dosage: 100 MG, 1X/DAY
     Route: 048
     Dates: start: 20190727, end: 20191129
  5. ETHAMBUTOL HYDROCHLORIDE. [Concomitant]
     Active Substance: ETHAMBUTOL HYDROCHLORIDE
  6. PANTOPRAZOLE [Concomitant]
     Active Substance: PANTOPRAZOLE
  7. ALDACTONE [Concomitant]
     Active Substance: SPIRONOLACTONE
  8. ZITHROMAX [Suspect]
     Active Substance: AZITHROMYCIN DIHYDRATE
     Indication: ATYPICAL MYCOBACTERIAL INFECTION
     Dosage: 250 MG, 1X/DAY
     Route: 048
     Dates: start: 20190727, end: 20191129
  9. PLAQUENIL [Suspect]
     Active Substance: HYDROXYCHLOROQUINE SULFATE
     Indication: SJOGREN^S SYNDROME
     Dosage: 1 DF, 1X/DAY
     Route: 048
     Dates: end: 20191129
  10. TRAMADOL. [Concomitant]
     Active Substance: TRAMADOL

REACTIONS (1)
  - Electrocardiogram QT prolonged [Recovered/Resolved]

NARRATIVE: CASE EVENT DATE: 20191129
